FAERS Safety Report 10436809 (Version 2)
Quarter: 2014Q3

REPORT INFORMATION
  Report Type: Spontaneous
  Country: US (occurrence: US)
  Receive Date: 20140908
  Receipt Date: 20140908
  Transmission Date: 20150326
  Serious: Yes (Other)
  Sender: FDA-Public Use
  Company Number: US-BRISTOL-MYERS SQUIBB COMPANY-20242871

PATIENT
  Age: 59 Year
  Sex: Male
  Weight: 150.56 kg

DRUGS (2)
  1. ABILIFY [Suspect]
     Active Substance: ARIPIPRAZOLE
     Indication: BIPOLAR DISORDER
  2. DEPAKOTE [Concomitant]
     Active Substance: DIVALPROEX SODIUM

REACTIONS (7)
  - Weight increased [Unknown]
  - Decreased activity [Unknown]
  - Hypertension [Unknown]
  - Insomnia [Unknown]
  - Gait disturbance [Unknown]
  - Visual impairment [Unknown]
  - Dizziness [Unknown]
